FAERS Safety Report 15694677 (Version 1)
Quarter: 2018Q4

REPORT INFORMATION
  Report Type: Spontaneous
  Country: US (occurrence: US)
  Receive Date: 20181127
  Receipt Date: 20181127
  Transmission Date: 20190205
  Serious: Yes (Hospitalization, Other)
  Sender: FDA-Public Use
  Company Number: None

PATIENT
  Age: 57 Year
  Sex: Female
  Weight: 148.5 kg

DRUGS (10)
  1. ASA [Concomitant]
     Active Substance: ASPIRIN
  2. APAP [Concomitant]
     Active Substance: ACETAMINOPHEN
  3. FERROUS SULFATE. [Concomitant]
     Active Substance: FERROUS SULFATE
  4. EFFIENT [Concomitant]
     Active Substance: PRASUGREL HYDROCHLORIDE
  5. LEVOTHYROXINE. [Concomitant]
     Active Substance: LEVOTHYROXINE
  6. ROSUVASTATIN CALCIUM. [Concomitant]
     Active Substance: ROSUVASTATIN CALCIUM
  7. IMATINIB. [Suspect]
     Active Substance: IMATINIB MESYLATE
     Indication: CHRONIC MYELOID LEUKAEMIA
     Route: 048
     Dates: start: 20180329
  8. PEN V K [Concomitant]
  9. EFFIENT [Concomitant]
     Active Substance: PRASUGREL HYDROCHLORIDE
  10. OMEPRAZOLE. [Concomitant]
     Active Substance: OMEPRAZOLE

REACTIONS (2)
  - Arthropathy [None]
  - Ankle fracture [None]

NARRATIVE: CASE EVENT DATE: 20181117
